FAERS Safety Report 8436798-5 (Version None)
Quarter: 2012Q2

REPORT INFORMATION
  Report Type: 
  Country: None (occurrence: None)
  Receive Date: 20120614
  Receipt Date: 20120611
  Transmission Date: 20120825
  Serious: Yes (Other)
  Sender: FDA-Public Use
  Company Number: US-PFIZER INC-2012140089

PATIENT
  Sex: Male
  Weight: 74.83 kg

DRUGS (7)
  1. GABAPENTIN [Suspect]
     Indication: DEPRESSION
  2. KLONOPIN [Concomitant]
     Indication: CONVULSION
  3. SUBOXONE [Concomitant]
     Indication: DRUG ABUSE
     Dosage: 8/2 MG, DAILY
  4. KLONOPIN [Concomitant]
     Indication: ANXIETY
  5. GABAPENTIN [Suspect]
     Indication: BIPOLAR DISORDER
     Dosage: 300 MG, 4X/DAY
     Dates: end: 20110101
  6. KLONOPIN [Concomitant]
     Indication: PANIC DISORDER
     Dosage: 2 MG, 2X/DAY
  7. GABAPENTIN [Suspect]
     Indication: AGITATION
     Dosage: 300 MG, 4X/DAY
     Dates: start: 20110101

REACTIONS (13)
  - PAIN [None]
  - NERVOUSNESS [None]
  - MUSCLE DISORDER [None]
  - FATIGUE [None]
  - DECREASED INTEREST [None]
  - SELF ESTEEM DECREASED [None]
  - HEADACHE [None]
  - MENTAL DISORDER [None]
  - DISTURBANCE IN ATTENTION [None]
  - BALANCE DISORDER [None]
  - ASTHENIA [None]
  - PARANOIA [None]
  - MYALGIA [None]
